FAERS Safety Report 5858397-1 (Version None)
Quarter: 2008Q3

REPORT INFORMATION
  Report Type: 
  Country: None (occurrence: None)
  Receive Date: 20080826
  Receipt Date: 20080820
  Transmission Date: 20090109
  Serious: Yes (Life-Threatening, Hospitalization)
  Sender: FDA-Public Use
  Company Number: FR-WYE-G02029508

PATIENT
  Sex: Female

DRUGS (12)
  1. ADVIL LIQUI-GELS [Suspect]
     Dosage: ONE SINGLE DOSE
     Route: 048
     Dates: start: 20080601, end: 20080601
  2. LEXOMIL [Concomitant]
     Indication: ANXIETY
     Dosage: 0.5 TABLET AS REQUIRED
     Route: 048
     Dates: start: 20050101, end: 20080101
  3. PRAZEPAM [Concomitant]
     Route: 048
     Dates: start: 20080420, end: 20080101
  4. ACETAMINOPHEN [Concomitant]
     Indication: HEADACHE
     Dosage: AS REQUIRED
     Route: 048
     Dates: end: 20080101
  5. MULTI-VITAMINS [Suspect]
     Dosage: UNKNOWN
     Route: 048
     Dates: start: 20080601, end: 20080101
  6. PNEUMOREL [Suspect]
     Indication: SINUSITIS
     Dosage: UNKNOWN
     Route: 048
     Dates: start: 20080621, end: 20080630
  7. DERINOX [Suspect]
     Indication: SINUSITIS
     Dosage: UNKNOWN
     Route: 045
     Dates: start: 20080621, end: 20080101
  8. SUPRADYN [Suspect]
     Dosage: UNKNOWN
     Route: 048
     Dates: start: 20080601, end: 20080101
  9. EUPHYTOSE [Suspect]
     Dosage: UNKNOWN
     Route: 048
     Dates: start: 20080630, end: 20080101
  10. BETACAROTENE [Suspect]
     Dosage: UNKNOWN
     Route: 048
     Dates: start: 20080601, end: 20080101
  11. NORDETTE-21 [Concomitant]
     Route: 048
     Dates: start: 20030101
  12. SOLUPRED [Suspect]
     Indication: SINUSITIS
     Dosage: UNKNOWN
     Route: 048
     Dates: start: 20080621, end: 20080624

REACTIONS (7)
  - BLOOD PRESSURE DECREASED [None]
  - CYTOLYTIC HEPATITIS [None]
  - HAEMORRHAGE [None]
  - INFLAMMATION [None]
  - NEUTROPENIA [None]
  - STEVENS-JOHNSON SYNDROME [None]
  - TACHYCARDIA [None]
